FAERS Safety Report 10151205 (Version 1)
Quarter: 2014Q2

REPORT INFORMATION
  Report Type: Spontaneous
  Country: US (occurrence: US)
  Receive Date: 20140502
  Receipt Date: 20140502
  Transmission Date: 20141212
  Serious: No
  Sender: FDA-Public Use
  Company Number: US-ASTRAZENECA-2013SE93008

PATIENT
  Age: 60 Year
  Sex: Male

DRUGS (4)
  1. PRILOSEC OTC [Suspect]
     Route: 048
     Dates: start: 20131211
  2. LISINOPRIL [Concomitant]
     Dosage: UNKNOWN
  3. AMOXAPINE [Concomitant]
     Dosage: UNKNOWN
  4. HYDROCOTRAL [Concomitant]
     Dosage: UNKNOWN

REACTIONS (2)
  - Abdominal pain upper [Recovered/Resolved]
  - Intentional product misuse [Unknown]
